FAERS Safety Report 20752389 (Version 1)
Quarter: 2022Q2

REPORT INFORMATION
  Report Type: Spontaneous
  Country: US (occurrence: None)
  Receive Date: 20220426
  Receipt Date: 20220426
  Transmission Date: 20220721
  Serious: No
  Sender: FDA-Public Use
  Company Number: US-ROCHE-2870168

PATIENT
  Sex: Female

DRUGS (8)
  1. ESBRIET [Suspect]
     Active Substance: PIRFENIDONE
     Indication: Myocardial ischaemia
     Route: 048
     Dates: start: 202103
  2. ASPIRIN [Concomitant]
     Active Substance: ASPIRIN
  3. LISINOPRIL [Concomitant]
     Active Substance: LISINOPRIL
  4. METOPROLOL [Concomitant]
     Active Substance: METOPROLOL
  5. DIETARY SUPPLEMENT\HERBALS\MILK THISTLE [Concomitant]
     Active Substance: DIETARY SUPPLEMENT\HERBALS\MILK THISTLE
  6. NEXIUM [Concomitant]
     Active Substance: ESOMEPRAZOLE MAGNESIUM
  7. NITROSTAT [Concomitant]
     Active Substance: NITROGLYCERIN
  8. ZYRTEC [Concomitant]
     Active Substance: CETIRIZINE HYDROCHLORIDE

REACTIONS (3)
  - Nausea [Not Recovered/Not Resolved]
  - Fatigue [Not Recovered/Not Resolved]
  - Asthenia [Not Recovered/Not Resolved]
